FAERS Safety Report 23079297 (Version 2)
Quarter: 2023Q4

REPORT INFORMATION
  Report Type: Spontaneous
  Country: JP (occurrence: JP)
  Receive Date: 20231018
  Receipt Date: 20231113
  Transmission Date: 20240110
  Serious: Yes (Hospitalization, Other)
  Sender: FDA-Public Use
  Company Number: JP-ONO-2023JP024156

PATIENT
  Age: 49 Year
  Sex: Female

DRUGS (2)
  1. BRAFTOVI [Suspect]
     Active Substance: ENCORAFENIB
     Indication: Colon cancer
     Dosage: 225 MG, 1X/DAY
     Route: 048
     Dates: start: 20230530, end: 20230926
  2. ERBITUX [Concomitant]
     Active Substance: CETUXIMAB
     Indication: Colon cancer
     Dosage: UNK
     Route: 065

REACTIONS (3)
  - Infection [Unknown]
  - Neoplasm progression [Unknown]
  - Underdose [Unknown]

NARRATIVE: CASE EVENT DATE: 20230530
